FAERS Safety Report 24349406 (Version 9)
Quarter: 2025Q2

REPORT INFORMATION
  Report Type: Spontaneous
  Country: CO (occurrence: CO)
  Receive Date: 20240923
  Receipt Date: 20250508
  Transmission Date: 20250717
  Serious: Yes (Other)
  Sender: SANOFI AVENTIS
  Company Number: CO-SA-2024SA257185

PATIENT
  Age: 62 Year
  Sex: Female

DRUGS (6)
  1. FABRAZYME [Suspect]
     Active Substance: AGALSIDASE BETA
     Indication: Fabry^s disease
     Dosage: 40 MG, Q15D
     Route: 042
     Dates: end: 2024
  2. FABRAZYME [Suspect]
     Active Substance: AGALSIDASE BETA
     Indication: Lysosomal storage disorder
     Dosage: 40 MG, Q15D
     Route: 042
  3. ACETAMINOPHEN [Concomitant]
     Active Substance: ACETAMINOPHEN
     Indication: Premedication
     Route: 048
  4. CLEMASTINE [Concomitant]
     Active Substance: CLEMASTINE
     Indication: Premedication
     Dosage: 1 G, QD
     Route: 048
  5. DIPHENHYDRAMINE [Concomitant]
     Active Substance: DIPHENHYDRAMINE
     Indication: Premedication
     Route: 048
  6. ACETAMINOPHEN [Concomitant]
     Active Substance: ACETAMINOPHEN
     Indication: Premedication
     Route: 048

REACTIONS (23)
  - Macroglossia [Unknown]
  - Abnormal faeces [Recovered/Resolved]
  - Influenza [Unknown]
  - Pyrexia [Unknown]
  - Discomfort [Unknown]
  - Gastrointestinal disorder [Unknown]
  - Abdominal distension [Unknown]
  - Diarrhoea [Unknown]
  - Nausea [Unknown]
  - Vertigo [Unknown]
  - Gastroenteritis [Recovered/Resolved with Sequelae]
  - Tremor [Recovered/Resolved]
  - Palpitations [Recovered/Resolved]
  - Abdominal pain [Recovered/Resolved]
  - Headache [Recovering/Resolving]
  - Headache [Unknown]
  - Dizziness [Recovered/Resolved]
  - Dizziness [Recovering/Resolving]
  - Chills [Recovered/Resolved]
  - Malaise [Recovered/Resolved]
  - Cardiac pacemaker insertion [Unknown]
  - Palpitations [Not Recovered/Not Resolved]
  - Chest pain [Not Recovered/Not Resolved]

NARRATIVE: CASE EVENT DATE: 20240101
